FAERS Safety Report 4507129-8 (Version None)
Quarter: 2004Q4

REPORT INFORMATION
  Report Type: 
  Country: None (occurrence: None)
  Receive Date: 20041116
  Receipt Date: 20041102
  Transmission Date: 20050328
  Serious: Yes (Life-Threatening)
  Sender: FDA-Public Use
  Company Number: 04P-163-0279839-00

PATIENT
  Age: 19 Year
  Sex: Female

DRUGS (3)
  1. NIMBEX [Suspect]
     Indication: INDUCTION OF ANAESTHESIA
     Dosage: 10 MG
  2. FENTANYL [Concomitant]
  3. PROPOFOL [Concomitant]

REACTIONS (13)
  - BLOOD PRESSURE IMMEASURABLE [None]
  - CAPILLARY DISORDER [None]
  - CARDIAC ARREST [None]
  - CARDIAC ENZYMES INCREASED [None]
  - CAROTID PULSE ABNORMAL [None]
  - HEART SOUNDS ABNORMAL [None]
  - HYPOXIA [None]
  - MYOCARDIAL ISCHAEMIA [None]
  - PULSE ABSENT [None]
  - SINUS TACHYCARDIA [None]
  - SKIN TEST POSITIVE [None]
  - SUPRAVENTRICULAR TACHYCARDIA [None]
  - VENTRICULAR TACHYCARDIA [None]
